FAERS Safety Report 15290779 (Version 2)
Quarter: 2018Q4

REPORT INFORMATION
  Report Type: Spontaneous
  Country: US (occurrence: US)
  Receive Date: 20180817
  Receipt Date: 20181012
  Transmission Date: 20190204
  Serious: Yes (Hospitalization)
  Sender: FDA-Public Use
  Company Number: US-MYLANLABS-2018M1061105

PATIENT
  Sex: Female
  Weight: 131 kg

DRUGS (2)
  1. FENTANYL TRANSDERMAL SYSTEM [Suspect]
     Active Substance: FENTANYL
     Indication: FIBROMYALGIA
  2. FENTANYL TRANSDERMAL SYSTEM [Suspect]
     Active Substance: FENTANYL
     Indication: INTERVERTEBRAL DISC DEGENERATION
     Dosage: UNK UNK, PRN (AS DIRECTED)
     Route: 062
     Dates: start: 2016

REACTIONS (7)
  - Product dose omission [Unknown]
  - Wrong technique in product usage process [Unknown]
  - Nervousness [Recovering/Resolving]
  - Pain [Recovering/Resolving]
  - Product adhesion issue [Unknown]
  - Withdrawal syndrome [Recovering/Resolving]
  - Anxiety [Recovering/Resolving]

NARRATIVE: CASE EVENT DATE: 2017
